FAERS Safety Report 10572069 (Version 3)
Quarter: 2015Q1

REPORT INFORMATION
  Report Type: Spontaneous
  Country: US (occurrence: US)
  Receive Date: 20141107
  Receipt Date: 20150203
  Transmission Date: 20150720
  Serious: Yes (Other)
  Sender: FDA-Public Use
  Company Number: US-GLAXOSMITHKLINE-US2014GSK018465

PATIENT
  Age: 69 Year
  Sex: Female

DRUGS (13)
  1. LISINOPRIL. [Concomitant]
     Active Substance: LISINOPRIL
  2. LANTUS [Concomitant]
     Active Substance: INSULIN GLARGINE
  3. VITAMINS [Concomitant]
     Active Substance: VITAMINS
  4. GARLIC. [Concomitant]
     Active Substance: GARLIC
  5. POTASSIUM [Concomitant]
     Active Substance: POTASSIUM
  6. ZETIA [Concomitant]
     Active Substance: EZETIMIBE
  7. ASPIRIN. [Concomitant]
     Active Substance: ASPIRIN
  8. PLANT LECTIN [Concomitant]
  9. NOVOLOG [Concomitant]
     Active Substance: INSULIN ASPART
  10. METOPROLOL [Concomitant]
     Active Substance: METOPROLOL
  11. LOVAZA [Suspect]
     Active Substance: OMEGA-3-ACID ETHYL ESTERS
     Indication: BLOOD CHOLESTEROL INCREASED
     Dosage: 4 DF, QD
     Route: 048
     Dates: start: 2012
  12. FUROSEMIDE. [Concomitant]
     Active Substance: FUROSEMIDE
  13. NORTRIPTYLINE [Concomitant]
     Active Substance: NORTRIPTYLINE

REACTIONS (2)
  - Haematochezia [Not Recovered/Not Resolved]
  - Rectal haemorrhage [Not Recovered/Not Resolved]

NARRATIVE: CASE EVENT DATE: 201410
